FAERS Safety Report 9805657 (Version 1)
Quarter: 2014Q1

REPORT INFORMATION
  Report Type: Spontaneous
  Country: US (occurrence: US)
  Receive Date: 20140109
  Receipt Date: 20140109
  Transmission Date: 20141002
  Serious: No
  Sender: FDA-Public Use
  Company Number: US-TARO-2013P1019328

PATIENT
  Age: 71 Year
  Sex: Female

DRUGS (3)
  1. CLOBETASOL PROPIONATE (CLOBETASOL PROPIONATE) LOTION, 0.05% [Suspect]
     Route: 061
     Dates: start: 20130816, end: 201308
  2. CLOBETASOL PROPIONATE (CLOBETASOL PROPIONATE) LOTION, 0.05% [Suspect]
     Route: 061
     Dates: start: 20130902
  3. ^PRESCRIPTION SCALP OIL^ [Concomitant]

REACTIONS (4)
  - Alopecia [Not Recovered/Not Resolved]
  - Headache [Recovered/Resolved]
  - Eye irritation [Recovering/Resolving]
  - Pruritus [Recovering/Resolving]
